FAERS Safety Report 19597227 (Version 3)
Quarter: 2021Q3

REPORT INFORMATION
  Report Type: Report from Study
  Country: CA (occurrence: CA)
  Receive Date: 20210723
  Receipt Date: 20210805
  Transmission Date: 20211014
  Serious: Yes (Hospitalization)
  Sender: FDA-Public Use
  Company Number: CA-BIOGEN-2018BI00552298

PATIENT
  Sex: Female

DRUGS (5)
  1. FAMPYRA [Suspect]
     Active Substance: DALFAMPRIDINE
     Dosage: 10 MG 1 TIME IN AM AND 1/2 IN HS
     Route: 050
     Dates: start: 20151206, end: 20210715
  2. FAMPYRA [Suspect]
     Active Substance: DALFAMPRIDINE
     Route: 050
     Dates: start: 20180404
  3. FAMPYRA [Suspect]
     Active Substance: DALFAMPRIDINE
     Route: 050
  4. FAMPYRA [Suspect]
     Active Substance: DALFAMPRIDINE
     Dosage: 1 IN AM AND HALF IN HS
     Route: 050
  5. FAMPYRA [Suspect]
     Active Substance: DALFAMPRIDINE
     Indication: GAIT DISTURBANCE
     Route: 050
     Dates: start: 20150612, end: 20180403

REACTIONS (3)
  - Seizure [Unknown]
  - Glomerular filtration rate decreased [Not Recovered/Not Resolved]
  - Prescribed underdose [Recovered/Resolved]
